FAERS Safety Report 20849005 (Version 10)
Quarter: 2022Q3

REPORT INFORMATION
  Report Type: Spontaneous
  Country: ES (occurrence: ES)
  Receive Date: 20220519
  Receipt Date: 20220914
  Transmission Date: 20221027
  Serious: Yes (Hospitalization, Other)
  Sender: FDA-Public Use
  Company Number: ES-NOVARTISPH-NVSC2022ES113280

PATIENT
  Age: 75 Year
  Sex: Male

DRUGS (21)
  1. METFORMIN [Interacting]
     Active Substance: METFORMIN HYDROCHLORIDE
     Indication: Diabetes mellitus
     Dosage: 1 G, BID, 1/0/1
     Route: 048
  2. METFORMIN [Interacting]
     Active Substance: METFORMIN HYDROCHLORIDE
     Indication: Cerebrovascular accident
     Dosage: 850 MG, BID (1/0/1)
     Route: 065
  3. METFORMIN [Interacting]
     Active Substance: METFORMIN HYDROCHLORIDE
     Dosage: UNK, BID
     Route: 065
     Dates: start: 2018
  4. CLOPIDOGREL [Interacting]
     Active Substance: CLOPIDOGREL BISULFATE
     Indication: Cerebrovascular accident
     Dosage: 75 MG, QD, 0/1/0
     Route: 048
  5. CLOPIDOGREL [Interacting]
     Active Substance: CLOPIDOGREL BISULFATE
     Indication: Cardiovascular disorder
  6. CLOPIDOGREL [Interacting]
     Active Substance: CLOPIDOGREL BISULFATE
     Indication: Diabetes mellitus
  7. PANTOPRAZOLE [Suspect]
     Active Substance: PANTOPRAZOLE
     Indication: Abdominal pain upper
     Dosage: 40 MG, QD, 1/0/0
     Route: 048
  8. PANTOPRAZOLE [Suspect]
     Active Substance: PANTOPRAZOLE
     Indication: Prophylaxis against gastrointestinal ulcer
     Dosage: UNK, BID
     Route: 065
     Dates: start: 202005
  9. PANTOPRAZOLE [Suspect]
     Active Substance: PANTOPRAZOLE
     Indication: Gastrointestinal disorder prophylaxis
  10. ACETAMINOPHEN [Suspect]
     Active Substance: ACETAMINOPHEN
     Indication: Pain
     Dosage: 1000 MG, PRN (AS NECESSARY), ON DEMAND
     Route: 048
  11. DONEPEZIL [Suspect]
     Active Substance: DONEPEZIL
     Indication: Dementia
     Dosage: 10 MG, QD, 1/0/0
     Route: 048
  12. REPAGLINIDE [Interacting]
     Active Substance: REPAGLINIDE
     Indication: Diabetes mellitus
     Dosage: 2 MG, QD, 1/0/1, 2/2/1
     Route: 048
  13. REPAGLINIDE [Interacting]
     Active Substance: REPAGLINIDE
     Dosage: UNK, TID
     Route: 065
  14. PREDNISONE [Interacting]
     Active Substance: PREDNISONE
     Indication: Gastrointestinal inflammation
     Dosage: UNK (FREQUENCY OF ADMINISTRATION 0.5/0.5, FOR 3 MONTHS)
     Route: 065
  15. PREDNISONE [Interacting]
     Active Substance: PREDNISONE
     Indication: Inflammatory bowel disease
     Dosage: 0.5 DOSAGE FORM, BID
     Route: 065
     Dates: start: 202005
  16. VILDAGLIPTIN [Concomitant]
     Active Substance: VILDAGLIPTIN
     Indication: Diabetes mellitus
     Dosage: 50 MG, BID (0/1/1)
     Route: 048
  17. FOLIC ACID [Concomitant]
     Active Substance: FOLIC ACID
     Indication: Folate deficiency
     Dosage: 5 MG, QD
     Route: 048
  18. FOLIC ACID [Concomitant]
     Active Substance: FOLIC ACID
     Indication: Hypovitaminosis
  19. FOLIC ACID [Concomitant]
     Active Substance: FOLIC ACID
     Indication: Vitamin B complex deficiency
  20. CALCIO + VITAMINA D3 [Concomitant]
     Indication: Steroid therapy
     Dosage: 1 DOSAGE FORM (1000 MG/800 UL), QD 0/1/0
     Route: 048
  21. CALCIO + VITAMINA D3 [Concomitant]
     Indication: Osteoporosis prophylaxis

REACTIONS (10)
  - Flatulence [Recovering/Resolving]
  - Abdominal pain [Recovering/Resolving]
  - Anal incontinence [Recovering/Resolving]
  - Diarrhoea [Recovering/Resolving]
  - Drug interaction [Recovering/Resolving]
  - Glycosylated haemoglobin increased [Recovering/Resolving]
  - Blood triglycerides increased [Recovering/Resolving]
  - Hyperglycaemia [Recovering/Resolving]
  - Crohn^s disease [Unknown]
  - Product prescribing issue [Recovering/Resolving]
